FAERS Safety Report 16469270 (Version 1)
Quarter: 2019Q3

REPORT INFORMATION
  Report Type: Spontaneous
  Country: US (occurrence: US)
  Receive Date: 20190621
  Receipt Date: 20190621
  Transmission Date: 20191004
  Serious: Yes (Life-Threatening)
  Sender: FDA-Public Use
  Company Number: None

PATIENT
  Age: 64 Year
  Sex: Female
  Weight: 70.65 kg

DRUGS (28)
  1. SYNTHROID [Concomitant]
     Active Substance: LEVOTHYROXINE SODIUM
  2. DIAZEPAM. [Concomitant]
     Active Substance: DIAZEPAM
  3. TESTOSTERONE. [Concomitant]
     Active Substance: TESTOSTERONE
  4. MOMETASONE [Concomitant]
     Active Substance: MOMETASONE
  5. LORAZEPAM. [Concomitant]
     Active Substance: LORAZEPAM
  6. VALACYCLOVIR [Concomitant]
     Active Substance: VALACYCLOVIR HYDROCHLORIDE
  7. POTASSIUM BICARBONATE. [Concomitant]
     Active Substance: POTASSIUM BICARBONATE
  8. AMILORIDE [Concomitant]
     Active Substance: AMILORIDE
  9. PHENOBARBITAL. [Concomitant]
     Active Substance: PHENOBARBITAL
  10. LEVALBUTEROL TARTRATE. [Concomitant]
     Active Substance: LEVALBUTEROL TARTRATE
  11. DIPHENHYDRAMINE. [Concomitant]
     Active Substance: DIPHENHYDRAMINE
  12. VITAMIN D [Concomitant]
     Active Substance: VITAMIN D NOS
  13. DICHLORPHENAMIDE [Concomitant]
     Active Substance: DICHLORPHENAMIDE
  14. PROPRANOLOL [Concomitant]
     Active Substance: PROPRANOLOL HYDROCHLORIDE
  15. TOPIRAMATE. [Concomitant]
     Active Substance: TOPIRAMATE
  16. XOLAIR SQ [Concomitant]
  17. EPINEPHRINE. [Concomitant]
     Active Substance: EPINEPHRINE
  18. AZASITE [Concomitant]
     Active Substance: AZITHROMYCIN MONOHYDRATE
  19. PROCHLORPERAZINE. [Concomitant]
     Active Substance: PROCHLORPERAZINE
  20. TRAMADOL. [Concomitant]
     Active Substance: TRAMADOL
  21. CELECOXIB. [Concomitant]
     Active Substance: CELECOXIB
  22. CETIRIZINE [Concomitant]
     Active Substance: CETIRIZINE HYDROCHLORIDE
  23. BUTALBITAL, ACETAMINOPHEN, AND CAFFEINE [Concomitant]
     Active Substance: ACETAMINOPHEN\BUTALBITAL\CAFFEINE
  24. OLOPATADINE HCL [Concomitant]
     Active Substance: OLOPATADINE HYDROCHLORIDE
  25. ESTRADIOL. [Concomitant]
     Active Substance: ESTRADIOL
  26. AIMOVIG [Suspect]
     Active Substance: ERENUMAB-AOOE
     Indication: MIGRAINE
     Dosage: ?          QUANTITY:1 SHOT;OTHER FREQUENCY:MONTHLY;OTHER ROUTE:INJECTED UNDER THE SKIN ON THE BELLY?
     Dates: start: 20190214, end: 20190522
  27. FLUCONAZOLE. [Concomitant]
     Active Substance: FLUCONAZOLE
  28. ACETAMINOPHEN. [Concomitant]
     Active Substance: ACETAMINOPHEN

REACTIONS (5)
  - Agitation [None]
  - Wheezing [None]
  - Sinus disorder [None]
  - Throat tightness [None]
  - Injection site urticaria [None]

NARRATIVE: CASE EVENT DATE: 20190522
